FAERS Safety Report 9110949 (Version 1)
Quarter: 2013Q1

REPORT INFORMATION
  Report Type: Spontaneous
  Country: US (occurrence: US)
  Receive Date: 20130219
  Receipt Date: 20130219
  Transmission Date: 20140127
  Serious: No
  Sender: FDA-Public Use
  Company Number: US-BRISTOL-MYERS SQUIBB COMPANY-16329906

PATIENT
  Age: 53 Year
  Sex: Male
  Weight: 86 kg

DRUGS (1)
  1. ORENCIA FOR INJ [Suspect]
     Dosage: LAST INFUSION 20DEC11
     Route: 042
     Dates: start: 20110923

REACTIONS (1)
  - Nasopharyngitis [Unknown]
